FAERS Safety Report 5298620-8 (Version None)
Quarter: 2007Q2

REPORT INFORMATION
  Report Type: 
  Country: None (occurrence: None)
  Receive Date: 20070417
  Receipt Date: 20070404
  Transmission Date: 20071010
  Serious: Yes (Other)
  Sender: FDA-Public Use
  Company Number: PHBS2006IE03321

PATIENT
  Age: 55 Year
  Sex: Female

DRUGS (2)
  1. AREDIA [Suspect]
     Indication: MULTIPLE MYELOMA
     Dosage: 30 MG, UNK
     Route: 042
     Dates: start: 19981106, end: 20060101
  2. ZOMETA [Suspect]
     Route: 065

REACTIONS (2)
  - DENTAL TREATMENT [None]
  - OSTEONECROSIS [None]
